FAERS Safety Report 14221299 (Version 2)
Quarter: 2018Q1

REPORT INFORMATION
  Report Type: Spontaneous
  Country: US (occurrence: US)
  Receive Date: 20171124
  Receipt Date: 20180126
  Transmission Date: 20180508
  Serious: No
  Sender: FDA-Public Use
  Company Number: US-PFIZER INC-2017505951

PATIENT
  Age: 73 Year
  Sex: Male
  Weight: 70.31 kg

DRUGS (6)
  1. METOPROLOL. [Concomitant]
     Active Substance: METOPROLOL
     Indication: CARDIAC DISORDER
     Dosage: 5MG OR 25MG, NOT SURE OF DOSE
     Dates: start: 2008
  2. ASPIRIN. [Concomitant]
     Active Substance: ASPIRIN
     Indication: ARTERIAL OCCLUSIVE DISEASE
     Dosage: 81 MG, ALTERNATE DAY (81MG EVERY OTHER DAY), USED TO TAKE THE PRODUCT EVERYDAY
     Dates: start: 2008
  3. ADVIL PM [Suspect]
     Active Substance: DIPHENHYDRAMINE CITRATE\IBUPROFEN
     Indication: SLEEP DISORDER
     Dosage: 25 MG, UNK (EVERY SECOND OR THIRD DAY)
     Route: 048
     Dates: start: 201612
  4. SIMVASTATIN. [Concomitant]
     Active Substance: SIMVASTATIN
     Dosage: UNK
     Dates: start: 2008
  5. ADVIL PM [Suspect]
     Active Substance: DIPHENHYDRAMINE CITRATE\IBUPROFEN
     Dosage: 1 DF, DAILY (ONE LIQUIGEL, BY MOUTH, ONE AT BED TIME), TRIED ONE PILL THE FIRST NIGHT
     Route: 048
     Dates: start: 201711, end: 201711
  6. ADVIL PM [Suspect]
     Active Substance: DIPHENHYDRAMINE CITRATE\IBUPROFEN
     Dosage: THE NEXT NIGHT HE TRIED TAKING TWO PILLS
     Route: 048
     Dates: start: 201711

REACTIONS (4)
  - Product label issue [Unknown]
  - Foreign body in respiratory tract [Not Recovered/Not Resolved]
  - Product label confusion [Unknown]
  - Intentional product misuse [Unknown]

NARRATIVE: CASE EVENT DATE: 201711
